FAERS Safety Report 15705871 (Version 2)
Quarter: 2019Q1

REPORT INFORMATION
  Report Type: Spontaneous
  Country: US (occurrence: US)
  Receive Date: 20181210
  Receipt Date: 20190220
  Transmission Date: 20190417
  Serious: Yes (Hospitalization, Other)
  Sender: FDA-Public Use
  Company Number: US-AMGEN-USASP2018175654

PATIENT
  Age: 71 Year
  Sex: Female
  Weight: 63.18 kg

DRUGS (37)
  1. DOXORUBICIN [Concomitant]
     Active Substance: DOXORUBICIN
     Indication: DIFFUSE LARGE B-CELL LYMPHOMA
     Dosage: 90 MG, UNK (50 MG/M2) (LATER 70 MG
     Route: 042
     Dates: start: 20180921
  2. MAGNESIUM SULFATE. [Concomitant]
     Active Substance: MAGNESIUM SULFATE
     Dosage: 1 G, UNK (ONCE)
     Route: 042
     Dates: start: 20181207
  3. IOHEXOL [Concomitant]
     Active Substance: IOHEXOL
     Dosage: 30 ML, UNK
     Route: 048
     Dates: start: 20181209
  4. CYCLOPHOSPHAMIDE. [Concomitant]
     Active Substance: CYCLOPHOSPHAMIDE
     Indication: DIFFUSE LARGE B-CELL LYMPHOMA
     Dosage: 1400 MG, UNK (750 MG/M2)
     Route: 042
     Dates: start: 20180921
  5. DEXAMETHASONE. [Concomitant]
     Active Substance: DEXAMETHASONE
     Indication: NAUSEA
     Dosage: 12 MG, UNK (8 MG)
     Route: 042
     Dates: start: 20180921
  6. ENOXAPARIN [Concomitant]
     Active Substance: ENOXAPARIN
     Dosage: 30 MG, Q12H (LATER 40 MG, QD)
     Route: 058
     Dates: start: 20180925
  7. PANTOPRAZOLE [Concomitant]
     Active Substance: PANTOPRAZOLE
     Dosage: 40 MG, QD
     Route: 048
  8. PROTONIX [Concomitant]
     Active Substance: PANTOPRAZOLE SODIUM
     Dosage: 40 MG, QD
  9. PALONOSETRON. [Concomitant]
     Active Substance: PALONOSETRON HYDROCHLORIDE
     Dosage: 250 MUG, UNK
     Route: 042
     Dates: start: 20180921
  10. MAGNESIUM OXIDE. [Concomitant]
     Active Substance: MAGNESIUM OXIDE
     Indication: HYPOMAGNESAEMIA
     Dosage: 800 MG, UNK (LATER 400 MG, 800 MG)
     Route: 048
  11. CHERATUSSIN AC [Concomitant]
     Active Substance: CODEINE PHOSPHATE\GUAIFENESIN
     Indication: COUGH
     Dosage: 10 ML, AS NECESSARY (10 MG-100MG/5 ML)
  12. LOVENOX [Concomitant]
     Active Substance: ENOXAPARIN SODIUM
     Indication: PROPHYLAXIS
     Dosage: 40 MG, QD
     Dates: start: 2018
  13. ACYCLOVIR. [Concomitant]
     Active Substance: ACYCLOVIR
     Dosage: 400 MG, Q12H
     Route: 048
     Dates: start: 20180925
  14. ATORVASTATIN [Concomitant]
     Active Substance: ATORVASTATIN
     Indication: HYPERLIPIDAEMIA
     Dosage: UNK
     Dates: end: 2018
  15. DIPHENHYDRAMINE. [Concomitant]
     Active Substance: DIPHENHYDRAMINE
     Dosage: 50 MG, QD (LATER 25 MG)
     Route: 042
     Dates: start: 20180926
  16. LEVOFLOXACIN. [Concomitant]
     Active Substance: LEVOFLOXACIN
     Dosage: 1 DF, QD FOR 10 DAYS
     Route: 048
  17. ROBITUSSIN A-C [Concomitant]
     Dosage: UNK
  18. RITUXIMAB. [Concomitant]
     Active Substance: RITUXIMAB
     Indication: DIFFUSE LARGE B-CELL LYMPHOMA
     Dosage: 100 MG, UNK (LATER 700 MG, 650 M,G, )
     Route: 042
     Dates: start: 20180921
  19. VINCRISTINE [Concomitant]
     Active Substance: VINCRISTINE
     Indication: DIFFUSE LARGE B-CELL LYMPHOMA
     Dosage: 2 MG, UNK (1.4 MG/M2) (LATER 1.9 MG)
     Route: 042
     Dates: start: 20180921
  20. LEVAQUIN [Concomitant]
     Active Substance: LEVOFLOXACIN
     Dosage: UNK UNK, QD (750)
  21. LACTULOSE. [Concomitant]
     Active Substance: LACTULOSE
     Dosage: 30 ML, Q2H
     Route: 048
     Dates: start: 20180925
  22. ATENOLOL. [Concomitant]
     Active Substance: ATENOLOL
     Indication: HYPERTENSION
     Dosage: 12.5 MG, QD (LATER 25 MG)
     Route: 048
     Dates: end: 2018
  23. POTASSIUM CHLORIDE. [Concomitant]
     Active Substance: POTASSIUM CHLORIDE
     Indication: HYPOKALAEMIA
     Dosage: 20 MEQ, QD (LATER 40 MEQ, 60 MEQ, 20 MEQ)
     Route: 048
  24. NORMAL SALINE [Concomitant]
     Active Substance: SODIUM CHLORIDE
     Dosage: 1000 ML, UNK
     Route: 042
     Dates: start: 20180921
  25. GUAIFENESIN. [Concomitant]
     Active Substance: GUAIFENESIN
     Indication: COUGH
     Dosage: 10 ML, AS NECESSARY (Q6H)
     Route: 048
     Dates: start: 20181209
  26. NEULASTA [Suspect]
     Active Substance: PEGFILGRASTIM
     Indication: NEUTROPENIA
     Dosage: 6 MG, UNK
     Route: 058
     Dates: start: 20180921
  27. METHOTREXATE. [Concomitant]
     Active Substance: METHOTREXATE
     Indication: DIFFUSE LARGE B-CELL LYMPHOMA
     Dosage: 12 MG, UNK
     Route: 037
     Dates: start: 20180921
  28. DOCUSATE SODIUM. [Concomitant]
     Active Substance: DOCUSATE SODIUM
     Dosage: 300 MG, QD (LATER 100 MG, Q8H)
     Route: 048
     Dates: start: 20180925
  29. METHYLPREDNISOLONE. [Concomitant]
     Active Substance: METHYLPREDNISOLONE
     Dosage: 100 MG, UNK
     Route: 042
     Dates: start: 20180926
  30. LIDOCAINE VISCOUS [Concomitant]
     Active Substance: LIDOCAINE HYDROCHLORIDE
     Dosage: 15 ML, UNK
     Dates: start: 20181207
  31. COLACE [Concomitant]
     Active Substance: DOCUSATE SODIUM
     Indication: CONSTIPATION
     Dosage: 1 DF, TID AS NEEDED
     Route: 048
  32. PREDNISONE. [Concomitant]
     Active Substance: PREDNISONE
     Indication: DIFFUSE LARGE B-CELL LYMPHOMA
     Dosage: 100 MG, QD FOR 5 DAYS AROUND TREATMENT
     Route: 048
  33. VALTREX [Concomitant]
     Active Substance: VALACYCLOVIR HYDROCHLORIDE
     Dosage: 400 MG, BID
  34. FOSAPREPITANT [Concomitant]
     Active Substance: FOSAPREPITANT
     Dosage: 150 MG, UNK
     Route: 042
     Dates: start: 20180921
  35. SENNA [Concomitant]
     Active Substance: SENNA LEAF\SENNOSIDES\SENNOSIDES A AND B
     Indication: CONSTIPATION
     Dosage: 2 DF, QHS (LATER 1 DF, QHS)
     Route: 048
  36. ACETAMINOPHEN. [Concomitant]
     Active Substance: ACETAMINOPHEN
     Dosage: 650 MG, QD
     Route: 048
     Dates: start: 20180926
  37. TRIAMCINOLONE [Concomitant]
     Active Substance: TRIAMCINOLONE
     Dosage: UNK UNK, Q12H (APPLY TOPICALLY TO AFFECTED AREA 2 TIMES A DAY TO SPOTS ON LEGS IF ITCHY)
     Route: 061
     Dates: start: 20181207

REACTIONS (15)
  - Anaemia [Unknown]
  - Tympanic membrane perforation [Recovered/Resolved]
  - Sinus tachycardia [Unknown]
  - Hypomagnesaemia [Unknown]
  - Otitis media acute [Recovered/Resolved]
  - Hypokalaemia [Recovered/Resolved]
  - Electrocardiogram QT prolonged [Unknown]
  - Nausea [Unknown]
  - Pulmonary hypertension [Unknown]
  - Troponin increased [Unknown]
  - Otitis externa [Recovered/Resolved]
  - White blood cell count decreased [Recovering/Resolving]
  - Nasopharyngitis [Unknown]
  - Febrile neutropenia [Unknown]
  - Splenomegaly [Unknown]

NARRATIVE: CASE EVENT DATE: 2018
